FAERS Safety Report 5357176-1 (Version None)
Quarter: 2007Q2

REPORT INFORMATION
  Report Type: 
  Country: None (occurrence: None)
  Receive Date: 20070612
  Receipt Date: 20070612
  Transmission Date: 20071010
  Serious: Yes (Life-Threatening, Hospitalization)
  Sender: FDA-Public Use
  Company Number: None

PATIENT
  Age: 37 Year
  Sex: Female
  Weight: 81.6475 kg

DRUGS (2)
  1. ZOLOFT [Suspect]
     Indication: NARCOLEPSY
     Dosage: DAILY
     Dates: start: 19980401, end: 19980713
  2. IONAMIN [Suspect]
     Dosage: DAILY
     Dates: start: 19980401, end: 19980713

REACTIONS (5)
  - ABNORMAL BEHAVIOUR [None]
  - ARTHRITIS [None]
  - PAIN [None]
  - PELVIC FRACTURE [None]
  - PSYCHOTIC DISORDER [None]
